FAERS Safety Report 13870905 (Version 1)
Quarter: 2017Q3

REPORT INFORMATION
  Report Type: Spontaneous
  Country: US (occurrence: None)
  Receive Date: 20170814
  Receipt Date: 20170814
  Transmission Date: 20171127
  Serious: Yes (Disabling)
  Sender: FDA-Public Use
  Company Number: None

PATIENT
  Age: 18 Year
  Sex: Female
  Weight: 44.91 kg

DRUGS (2)
  1. NEXPLANON [Suspect]
     Active Substance: ETONOGESTREL
     Dates: start: 20161227
  2. BIOTIN/MULTIVITAMIN SUPPLEMENTS [Concomitant]

REACTIONS (4)
  - Weight decreased [None]
  - Asthenia [None]
  - Loss of libido [None]
  - Pain [None]
